FAERS Safety Report 24467750 (Version 1)
Quarter: 2024Q4

REPORT INFORMATION
  Report Type: Report from Study
  Country: US (occurrence: US)
  Receive Date: 20241018
  Receipt Date: 20241018
  Transmission Date: 20250115
  Serious: No
  Sender: ROCHE
  Company Number: US-ROCHE-3579008

PATIENT
  Age: 31 Year
  Sex: Female
  Weight: 127.01 kg

DRUGS (7)
  1. XOLAIR [Suspect]
     Active Substance: OMALIZUMAB
     Indication: Idiopathic urticaria
     Dosage: VIAL?LAST INJECTION DATE: 03//2022
     Route: 058
  2. XOLAIR [Suspect]
     Active Substance: OMALIZUMAB
     Route: 065
  3. ALBUTEROL SULFATE [Concomitant]
     Active Substance: ALBUTEROL SULFATE
  4. TRELEGY ELLIPTA [Concomitant]
     Active Substance: FLUTICASONE FUROATE\UMECLIDINIUM BROMIDE\VILANTEROL TRIFENATATE
  5. FAMOTIDINE [Concomitant]
     Active Substance: FAMOTIDINE
  6. MONTELUKAST [Concomitant]
     Active Substance: MONTELUKAST
  7. PREDNISONE [Concomitant]
     Active Substance: PREDNISONE

REACTIONS (5)
  - Rash [Unknown]
  - Pruritus [Unknown]
  - Neoplasm [Unknown]
  - Seborrhoeic keratosis [Unknown]
  - Pain [Unknown]
